FAERS Safety Report 23026654 (Version 1)
Quarter: 2023Q4

REPORT INFORMATION
  Report Type: Spontaneous
  Country: US (occurrence: US)
  Receive Date: 20231004
  Receipt Date: 20231004
  Transmission Date: 20240109
  Serious: Yes (Other)
  Sender: FDA-Public Use
  Company Number: US-BRISTOL-MYERS SQUIBB COMPANY-2023-138999

PATIENT
  Age: 64 Year
  Sex: Female

DRUGS (4)
  1. DEXAMETHASONE [Suspect]
     Active Substance: DEXAMETHASONE
     Indication: Plasma cell myeloma
  2. POMALYST [Suspect]
     Active Substance: POMALIDOMIDE
     Indication: Plasma cell myeloma
  3. IXAZOMIB [Suspect]
     Active Substance: IXAZOMIB
     Indication: Plasma cell myeloma in remission
     Dosage: ONCE WEEKLY FOR 3 WEEKS FOLLOWED BY 1 WEEK OFF
     Route: 048
     Dates: start: 20171109, end: 20180201
  4. IXAZOMIB [Suspect]
     Active Substance: IXAZOMIB
     Dosage: ONCE WEEKLY FOR 3 WEEKS FOLLOWED BY 1 WEEK OFF
     Route: 048
     Dates: start: 202201

REACTIONS (3)
  - Neoplasm [Unknown]
  - Vision blurred [Not Recovered/Not Resolved]
  - Increased tendency to bruise [Unknown]

NARRATIVE: CASE EVENT DATE: 20171101
